FAERS Safety Report 10278635 (Version 2)
Quarter: 2014Q3

REPORT INFORMATION
  Report Type: Spontaneous
  Country: FR (occurrence: FR)
  Receive Date: 20140704
  Receipt Date: 20140704
  Transmission Date: 20150326
  Serious: Yes (Death)
  Sender: FDA-Public Use
  Company Number: FR-SA-A02200803727

PATIENT
  Age: 70 Year
  Sex: Male

DRUGS (4)
  1. ELOXATIN [Suspect]
     Active Substance: OXALIPLATIN
     Indication: ADENOCARCINOMA OF COLON
     Dosage: UNIT DOSE: 5 MG/ML
     Route: 042
     Dates: start: 200805
  2. CALCIUM LEVOFOLINATE [Suspect]
     Active Substance: LEVOLEUCOVORIN CALCIUM
     Indication: ADENOCARCINOMA OF COLON
     Route: 042
     Dates: start: 200805
  3. DEXAMETHASONE. [Suspect]
     Active Substance: DEXAMETHASONE
     Indication: ADENOCARCINOMA OF COLON
     Route: 042
     Dates: start: 200805
  4. FLUOROURACIL TEVA [Suspect]
     Active Substance: FLUOROURACIL
     Indication: ADENOCARCINOMA OF COLON
     Route: 042
     Dates: start: 200805

REACTIONS (5)
  - Aplasia [Fatal]
  - Haemodynamic instability [Fatal]
  - Respiratory failure [Fatal]
  - Diarrhoea [Fatal]
  - Sepsis [Fatal]

NARRATIVE: CASE EVENT DATE: 200809
